FAERS Safety Report 20558494 (Version 2)
Quarter: 2022Q1

REPORT INFORMATION
  Report Type: Spontaneous
  Country: US (occurrence: US)
  Receive Date: 20220307
  Receipt Date: 20220331
  Transmission Date: 20220423
  Serious: No
  Sender: FDA-Public Use
  Company Number: US-SA-SAC20220302000505

PATIENT
  Sex: Female

DRUGS (2)
  1. DUPIXENT [Suspect]
     Active Substance: DUPILUMAB
     Indication: Dermatitis atopic
     Dosage: 300 MG, QOW
     Route: 058
     Dates: start: 20220201
  2. NICOTINE [Concomitant]
     Active Substance: NICOTINE

REACTIONS (9)
  - Fatigue [Unknown]
  - Alopecia [Unknown]
  - Headache [Unknown]
  - Diarrhoea [Unknown]
  - Limb discomfort [Not Recovered/Not Resolved]
  - Insomnia [Unknown]
  - Dermatitis atopic [Unknown]
  - Dry eye [Not Recovered/Not Resolved]
  - Adverse drug reaction [Unknown]

NARRATIVE: CASE EVENT DATE: 20220201
